FAERS Safety Report 17389973 (Version 1)
Quarter: 2020Q1

REPORT INFORMATION
  Report Type: Report from Study
  Country: US (occurrence: US)
  Receive Date: 20200207
  Receipt Date: 20200207
  Transmission Date: 20200409
  Serious: Yes (Other)
  Sender: FDA-Public Use
  Company Number: US-ZYLA LIFE SCIENCES-US-2020EGA000053

PATIENT
  Age: 58 Year
  Sex: Male

DRUGS (1)
  1. SPRIX [Suspect]
     Active Substance: KETOROLAC TROMETHAMINE
     Indication: HEADACHE
     Dosage: ONE SPRAY IN EACH NOSTRIL EVERY 6-8 HOURS AS NEEDED
     Route: 045
     Dates: start: 20180418

REACTIONS (3)
  - Product use in unapproved indication [Unknown]
  - Road traffic accident [Unknown]
  - Multiple fractures [Recovering/Resolving]

NARRATIVE: CASE EVENT DATE: 20180418
